FAERS Safety Report 6227899-0 (Version None)
Quarter: 2009Q2

REPORT INFORMATION
  Report Type: 
  Country: None (occurrence: None)
  Receive Date: 20090612
  Receipt Date: 20090605
  Transmission Date: 20091009
  Serious: No
  Sender: FDA-Public Use
  Company Number: B0575977A

PATIENT
  Sex: Female
  Weight: 62 kg

DRUGS (2)
  1. AMOXIL [Suspect]
     Indication: BACTERIAL INFECTION
     Dosage: 10ML THREE TIMES PER DAY
     Route: 048
     Dates: start: 20090429, end: 20090501
  2. FLAGYL [Concomitant]
     Route: 065

REACTIONS (8)
  - ABDOMINAL PAIN UPPER [None]
  - DISTURBANCE IN ATTENTION [None]
  - DIZZINESS [None]
  - FLUSHING [None]
  - HYPERSENSITIVITY [None]
  - NAUSEA [None]
  - PRODUCT QUALITY ISSUE [None]
  - REACTION TO DRUG EXCIPIENTS [None]
